FAERS Safety Report 12412522 (Version 2)
Quarter: 2016Q2

REPORT INFORMATION
  Report Type: Spontaneous
  Country: CZ (occurrence: CZ)
  Receive Date: 20160527
  Receipt Date: 20160609
  Transmission Date: 20160815
  Serious: Yes (Other)
  Sender: FDA-Public Use
  Company Number: CZ-BAYER-2016-098255

PATIENT
  Sex: Male

DRUGS (1)
  1. NEXAVAR [Suspect]
     Active Substance: SORAFENIB
     Indication: THYROID CANCER METASTATIC
     Dosage: DAILY DOSE 800 MG
     Route: 048
     Dates: start: 20141122, end: 20150626

REACTIONS (6)
  - Rash pruritic [Recovering/Resolving]
  - Anaemia [Recovering/Resolving]
  - Stomatitis [None]
  - Thyroid cancer metastatic [Not Recovered/Not Resolved]
  - Dry mouth [None]
  - Hyperkeratosis [Recovering/Resolving]

NARRATIVE: CASE EVENT DATE: 2014
